FAERS Safety Report 19046910 (Version 1)
Quarter: 2021Q1

REPORT INFORMATION
  Report Type: Spontaneous
  Country: NL (occurrence: NL)
  Receive Date: 20210322
  Receipt Date: 20210322
  Transmission Date: 20210420
  Serious: Yes (Hospitalization, Other)
  Sender: FDA-Public Use
  Company Number: NL-AMGEN-NLDSP2021040763

PATIENT
  Age: 62 Year
  Sex: Female
  Weight: 88 kg

DRUGS (3)
  1. OXALIPLATINE [Concomitant]
     Active Substance: OXALIPLATIN
     Dosage: SOLUTION FOR INFUSION, 5MG/ML
  2. CAPECITABINE. [Concomitant]
     Active Substance: CAPECITABINE
     Dosage: FILM?COATED TABLET, 150 MG (MILLIGRAM)
  3. BEVACIZUMAB. [Suspect]
     Active Substance: BEVACIZUMAB
     Indication: COLON CANCER
     Dosage: 1 DOSAGE FORM (ONE SINGLE TIME)
     Route: 065
     Dates: start: 20210208, end: 20210226

REACTIONS (1)
  - Large intestine perforation [Recovering/Resolving]

NARRATIVE: CASE EVENT DATE: 20210226
